FAERS Safety Report 5407781-9 (Version None)
Quarter: 2007Q3

REPORT INFORMATION
  Report Type: 
  Country: None (occurrence: None)
  Receive Date: 20070807
  Receipt Date: 20070730
  Transmission Date: 20080115
  Serious: Yes (Hospitalization)
  Sender: FDA-Public Use
  Company Number: BR-SHR-BR-2007-028722

PATIENT
  Sex: Female

DRUGS (1)
  1. MIRENA [Suspect]
     Dosage: 20 A?G/DAY, CONT
     Route: 015
     Dates: start: 20060901

REACTIONS (5)
  - BLOOD PRESSURE FLUCTUATION [None]
  - HAEMATEMESIS [None]
  - HEADACHE [None]
  - HYPOAESTHESIA [None]
  - METRORRHAGIA [None]
